FAERS Safety Report 11874707 (Version 1)
Quarter: 2015Q4

REPORT INFORMATION
  Report Type: Spontaneous
  Country: US (occurrence: None)
  Receive Date: 20151228
  Receipt Date: 20151228
  Transmission Date: 20160305
  Serious: Yes (Disabling)
  Sender: FDA-Public Use
  Company Number: None

PATIENT
  Age: 48 Year
  Sex: Female
  Weight: 52.62 kg

DRUGS (6)
  1. NORETHINDRONE ACET/ETHINYL 1 MG/0/02 MG MYLAN/FAMY CARE [Suspect]
     Active Substance: ETHINYL ESTRADIOL\NORETHINDRONE ACETATE
     Indication: MIGRAINE
     Dosage: TAKEN BY MOUTH
     Dates: start: 20151109, end: 20151120
  2. VIT. D [Concomitant]
  3. VITAMIN C [Concomitant]
     Active Substance: ASCORBIC ACID
  4. VIT. B [Concomitant]
  5. DESOGESTREL/ESTRADIOL (VIORELE) [Concomitant]
  6. NORETHINDRONE ACET/ETHINYL 1 MG/0/02 MG MYLAN/FAMY CARE [Suspect]
     Active Substance: ETHINYL ESTRADIOL\NORETHINDRONE ACETATE
     Indication: CONTRACEPTION
     Dosage: TAKEN BY MOUTH
     Dates: start: 20151109, end: 20151120

REACTIONS (4)
  - Head titubation [None]
  - Coordination abnormal [None]
  - Muscle twitching [None]
  - Dizziness [None]

NARRATIVE: CASE EVENT DATE: 20151120
